FAERS Safety Report 9273259 (Version 1)
Quarter: 2013Q2

REPORT INFORMATION
  Report Type: Spontaneous
  Country: US (occurrence: US)
  Receive Date: 20130506
  Receipt Date: 20130506
  Transmission Date: 20140414
  Serious: Yes (Other)
  Sender: FDA-Public Use
  Company Number: US-ASTRAZENECA-2013SE30339

PATIENT
  Age: 77 Year
  Sex: Female

DRUGS (1)
  1. ARIMIDEX [Suspect]
     Indication: INVASIVE DUCTAL BREAST CARCINOMA
     Route: 048

REACTIONS (4)
  - Erythema [Unknown]
  - Fatigue [Unknown]
  - Decreased appetite [Unknown]
  - Rash generalised [Unknown]
